FAERS Safety Report 4783514-4 (Version None)
Quarter: 2005Q3

REPORT INFORMATION
  Report Type: 
  Country: None (occurrence: None)
  Receive Date: 20050914
  Receipt Date: 20050706
  Transmission Date: 20060218
  Serious: Yes (Other)
  Sender: FDA-Public Use
  Company Number: 163-20785-05070063

PATIENT
  Sex: 0

DRUGS (9)
  1. THALIDOMIDE OR PLACEBO (THALIDOMIDE) (CAPSULES) [Suspect]
     Indication: PROSTATIC INTRAEPITHELIAL NEOPLASIA
     Dosage: SEE IMAGE
     Route: 048
     Dates: start: 20020506, end: 20040301
  2. THALIDOMIDE OR PLACEBO (THALIDOMIDE) (CAPSULES) [Suspect]
     Indication: PROSTATIC INTRAEPITHELIAL NEOPLASIA
     Dosage: SEE IMAGE
     Route: 048
     Dates: start: 20040329
  3. LEUPROLIDE ACETATE [Suspect]
     Indication: PROSTATIC INTRAEPITHELIAL NEOPLASIA
     Dosage: SEE IMAGE
     Route: 030
     Dates: start: 20020506
  4. LEUPROLIDE ACETATE [Suspect]
     Indication: PROSTATIC INTRAEPITHELIAL NEOPLASIA
     Dosage: SEE IMAGE
     Route: 030
     Dates: start: 20030915
  5. (G) GOSERELIN [Suspect]
     Indication: PROSTATIC INTRAEPITHELIAL NEOPLASIA
     Dosage: SEE IMAGE
     Route: 058
     Dates: start: 20020506
  6. (G) GOSERELIN [Suspect]
     Indication: PROSTATIC INTRAEPITHELIAL NEOPLASIA
     Dosage: SEE IMAGE
     Route: 058
     Dates: start: 20040329
  7. (G) GOSERELIN [Suspect]
     Indication: PROSTATIC INTRAEPITHELIAL NEOPLASIA
     Dosage: 3.6 MG SC Q28 DAYS FOR 6 CYCLES OR (G) 10.8 MG SC Q84 DAYS FOR 2 CYCLES
     Route: 058
     Dates: start: 20020506
  8. (G) GOSERELIN [Suspect]
     Indication: PROSTATIC INTRAEPITHELIAL NEOPLASIA
     Dosage: 3.6 MG SC Q28 DAYS FOR 6 CYCLES OR (G) 10.8 MG SC Q84 DAYS FOR 2 CYCLES
     Route: 058
     Dates: start: 20030915
  9. (G) GOSERELIN [Suspect]
     Indication: PROSTATIC INTRAEPITHELIAL NEOPLASIA
     Dosage: 3.6 MG SC Q28 DAYS FOR 6 CYCLES OR (G) 10.8 MG SC Q84 DAYS FOR 2 CYCLES
     Route: 058
     Dates: start: 20040329

REACTIONS (2)
  - NEUROPATHIC PAIN [None]
  - SYNCOPE [None]
